FAERS Safety Report 11528874 (Version 2)
Quarter: 2015Q4

REPORT INFORMATION
  Report Type: Spontaneous
  Country: US (occurrence: US)
  Receive Date: 20150921
  Receipt Date: 20151104
  Transmission Date: 20160304
  Serious: No
  Sender: FDA-Public Use
  Company Number: US-PFIZER INC-2015314138

PATIENT
  Age: 63 Year
  Sex: Female

DRUGS (1)
  1. DEPO-PROVERA [Suspect]
     Active Substance: MEDROXYPROGESTERONE ACETATE
     Dosage: UNK
     Dates: start: 20150831, end: 20150831

REACTIONS (2)
  - Product quality issue [Unknown]
  - Injury [Unknown]

NARRATIVE: CASE EVENT DATE: 20150831
